FAERS Safety Report 8453576-1 (Version None)
Quarter: 2012Q2

REPORT INFORMATION
  Report Type: 
  Country: None (occurrence: None)
  Receive Date: 20120620
  Receipt Date: 20120618
  Transmission Date: 20120825
  Serious: Yes (Life-Threatening, Other)
  Sender: FDA-Public Use
  Company Number: US-CELGENEUS-163-21880-12040883

PATIENT
  Sex: Male

DRUGS (3)
  1. VELCADE [Concomitant]
     Route: 065
  2. REVLIMID [Suspect]
     Indication: MULTIPLE MYELOMA
     Dosage: 10 MILLIGRAM
     Route: 048
     Dates: start: 20120309
  3. REVLIMID [Suspect]
     Route: 065

REACTIONS (3)
  - SUPRAVENTRICULAR TACHYCARDIA [None]
  - BLOOD MAGNESIUM DECREASED [None]
  - RASH PRURITIC [None]
